FAERS Safety Report 8369258-0 (Version None)
Quarter: 2012Q2

REPORT INFORMATION
  Report Type: 
  Country: None (occurrence: None)
  Receive Date: 20120518
  Receipt Date: 20120514
  Transmission Date: 20120825
  Serious: Yes (Death, Hospitalization, Other)
  Sender: FDA-Public Use
  Company Number: PHHY2012MX041565

PATIENT
  Sex: Female

DRUGS (2)
  1. GLEEVEC [Suspect]
     Dosage: 600 MG UNK
  2. GLEEVEC [Suspect]
     Indication: CHRONIC MYELOID LEUKAEMIA
     Dosage: 400 MG UNK

REACTIONS (7)
  - HEPATIC FAILURE [None]
  - RESPIRATORY FAILURE [None]
  - HEPATIC CIRRHOSIS [None]
  - DEATH [None]
  - CHRONIC HEPATITIS [None]
  - RENAL FAILURE [None]
  - CHOLELITHIASIS [None]
